FAERS Safety Report 8806160 (Version 1)
Quarter: 2012Q4

REPORT INFORMATION
  Report Type: Spontaneous
  Country: US (occurrence: None)
  Receive Date: 20120917
  Receipt Date: 20120917
  Transmission Date: 20130627
  Serious: Yes (Hospitalization)
  Sender: FDA-Public Use
  Company Number: 2012AP002919

PATIENT
  Age: 59 Year
  Sex: Male

DRUGS (2)
  1. ALPRAZOLAM [Suspect]
  2. FENTANYL [Suspect]

REACTIONS (8)
  - Leukoencephalopathy [None]
  - Rhabdomyolysis [None]
  - Pneumonia aspiration [None]
  - Renal failure [None]
  - Unresponsive to stimuli [None]
  - Overdose [None]
  - Respiratory acidosis [None]
  - Blood alcohol increased [None]
